FAERS Safety Report 22615570 (Version 1)
Quarter: 2023Q2

REPORT INFORMATION
  Report Type: Other
  Country: CN (occurrence: CN)
  Receive Date: 20230619
  Receipt Date: 20230619
  Transmission Date: 20230722
  Serious: Yes (Hospitalization)
  Sender: FDA-Public Use
  Company Number: CN-GE HEALTHCARE-2023CSU004861

PATIENT
  Age: 56 Year
  Sex: Male
  Weight: 53 kg

DRUGS (3)
  1. OMNIPAQUE [Suspect]
     Active Substance: IOHEXOL
     Indication: Imaging procedure
     Dosage: 70 GM, SINGLE
     Route: 042
     Dates: start: 20230509, end: 20230509
  2. OMNIPAQUE [Suspect]
     Active Substance: IOHEXOL
     Indication: Brain stem infarction
  3. ASPIRIN [Concomitant]
     Active Substance: ASPIRIN
     Dosage: UNK

REACTIONS (1)
  - Blindness transient [Recovering/Resolving]

NARRATIVE: CASE EVENT DATE: 20230509
